FAERS Safety Report 12853035 (Version 7)
Quarter: 2017Q1

REPORT INFORMATION
  Report Type: Report from Study
  Country: BR (occurrence: BR)
  Receive Date: 20161017
  Receipt Date: 20170307
  Transmission Date: 20170428
  Serious: Yes (Hospitalization)
  Sender: FDA-Public Use
  Company Number: BR-AEGERION-AEGR002774

PATIENT

DRUGS (8)
  1. MYALEPT [Suspect]
     Active Substance: METRELEPTIN
     Dosage: INCREASE DOSAGE IN INCREMENTS OF 0.25 ML/DAY TO MAX OF 1.75 ML/DAY
     Route: 058
     Dates: start: 20161027
  2. MYALEPT [Suspect]
     Active Substance: METRELEPTIN
     Dosage: 0.5 ML, QD
     Route: 058
     Dates: start: 20161115, end: 20161115
  3. MYALEPT [Suspect]
     Active Substance: METRELEPTIN
     Dosage: 0.25 ML, QD
     Route: 058
     Dates: start: 20161116, end: 20161118
  4. METFORMIN [Concomitant]
     Active Substance: METFORMIN HYDROCHLORIDE
     Indication: DIABETES MELLITUS
     Dosage: 850 MG, BID
     Route: 065
  5. MYALEPT [Suspect]
     Active Substance: METRELEPTIN
     Dosage: 1.5 ML, QD
     Route: 058
     Dates: end: 201611
  6. MYALEPT [Suspect]
     Active Substance: METRELEPTIN
     Dosage: 1.1 ML, QD
     Route: 058
     Dates: start: 20160830, end: 201610
  7. MYALEPT [Suspect]
     Active Substance: METRELEPTIN
     Indication: CONGENITAL GENERALISED LIPODYSTROPHY
     Dosage: 1.0 ML, QD
     Route: 058
     Dates: start: 20160713, end: 20160829
  8. MYALEPT [Suspect]
     Active Substance: METRELEPTIN
     Dosage: TAPER OFF METRELEPTIN
     Route: 058
     Dates: start: 201611, end: 20161114

REACTIONS (9)
  - Urinary tract infection [Not Recovered/Not Resolved]
  - Pyrexia [Recovered/Resolved]
  - Epistaxis [Unknown]
  - Drug effect decreased [Unknown]
  - Insulin resistance [Not Recovered/Not Resolved]
  - Condition aggravated [Not Recovered/Not Resolved]
  - Vaginal haemorrhage [Recovered/Resolved]
  - Therapy cessation [Unknown]
  - Blood count abnormal [Not Recovered/Not Resolved]

NARRATIVE: CASE EVENT DATE: 2016
